FAERS Safety Report 6751659-5 (Version None)
Quarter: 2010Q2

REPORT INFORMATION
  Report Type: 
  Country: None (occurrence: None)
  Receive Date: 20100602
  Receipt Date: 20100528
  Transmission Date: 20101027
  Serious: Yes (Disabling)
  Sender: FDA-Public Use
  Company Number: A0861988A

PATIENT
  Sex: Male

DRUGS (7)
  1. PROMACTA [Suspect]
     Indication: IDIOPATHIC THROMBOCYTOPENIC PURPURA
     Dosage: 25MG PER DAY
     Route: 048
     Dates: start: 20090201
  2. COREG [Concomitant]
  3. MULTAQ [Concomitant]
  4. LANOXIN [Concomitant]
  5. METFORMIN HCL [Concomitant]
  6. PLAVIX [Concomitant]
  7. COUMADIN [Concomitant]

REACTIONS (2)
  - DYSPNOEA [None]
  - PLEURAL EFFUSION [None]
